FAERS Safety Report 24744737 (Version 1)
Quarter: 2024Q4

REPORT INFORMATION
  Report Type: Spontaneous
  Country: JP (occurrence: JP)
  Receive Date: 20241217
  Receipt Date: 20241217
  Transmission Date: 20250114
  Serious: Yes (Hospitalization)
  Sender: ELI LILLY AND COMPANY
  Company Number: JP-ELI_LILLY_AND_COMPANY-JP202412008177

PATIENT
  Age: 74 Year
  Sex: Male

DRUGS (2)
  1. INSULIN GLARGINE [Suspect]
     Active Substance: INSULIN GLARGINE
     Indication: Type 2 diabetes mellitus
     Route: 058
  2. INSULIN LISPRO [Suspect]
     Active Substance: INSULIN LISPRO
     Indication: Type 2 diabetes mellitus
     Route: 058

REACTIONS (6)
  - Cellulitis [Unknown]
  - Atrial fibrillation [Unknown]
  - Heart failure with preserved ejection fraction [Unknown]
  - Cardiac amyloidosis [Unknown]
  - Diabetes mellitus inadequate control [Unknown]
  - Cutaneous amyloidosis [Unknown]
